FAERS Safety Report 9768822 (Version 3)
Quarter: 2013Q4

REPORT INFORMATION
  Report Type: Report from Study
  Country: DZ (occurrence: DZ)
  Receive Date: 20131218
  Receipt Date: 20131231
  Transmission Date: 20140711
  Serious: Yes (Death)
  Sender: FDA-Public Use
  Company Number: DZ-ROCHE-1169833

PATIENT
  Sex: Female

DRUGS (7)
  1. TRASTUZUMAB [Suspect]
     Indication: BREAST CANCER
     Route: 042
     Dates: start: 20101006, end: 20110322
  2. NAVELBINE [Concomitant]
     Route: 042
  3. 5-FU [Concomitant]
  4. EPIRUBICIN [Concomitant]
  5. CYCLOPHOSPHAMIDE [Concomitant]
  6. TAXOTERE [Concomitant]
  7. LAPATINIB [Concomitant]

REACTIONS (1)
  - Disease progression [Fatal]
